FAERS Safety Report 7264642-0 (Version None)
Quarter: 2011Q1

REPORT INFORMATION
  Report Type: 
  Country: None (occurrence: None)
  Receive Date: 20110119
  Receipt Date: 20110107
  Transmission Date: 20110831
  Serious: Yes (Hospitalization, Other)
  Sender: FDA-Public Use
  Company Number: 017433

PATIENT
  Sex: Female
  Weight: 62.1428 kg

DRUGS (5)
  1. CIMZIA [Suspect]
     Indication: CROHN'S DISEASE
     Dosage: (2 SYRINGES SUBCUTANEOUS) ; (SUBCUTANEOUS) ; (2 SYRINGES SUBCUTANEOUS)
     Route: 058
     Dates: start: 20100505
  2. CIMZIA [Suspect]
     Indication: CROHN'S DISEASE
     Dosage: (2 SYRINGES SUBCUTANEOUS) ; (SUBCUTANEOUS) ; (2 SYRINGES SUBCUTANEOUS)
     Route: 058
     Dates: start: 20101101
  3. CIMZIA [Suspect]
     Indication: CROHN'S DISEASE
     Dosage: (2 SYRINGES SUBCUTANEOUS) ; (SUBCUTANEOUS) ; (2 SYRINGES SUBCUTANEOUS)
     Route: 058
     Dates: start: 20100301, end: 20100806
  4. PREDNISONE [Concomitant]
  5. METHOTREXATE [Concomitant]

REACTIONS (7)
  - ABDOMINAL PAIN [None]
  - ABSCESS [None]
  - INJECTION SITE SWELLING [None]
  - HYPOAESTHESIA [None]
  - NASOPHARYNGITIS [None]
  - INFECTED CYST [None]
  - CONDITION AGGRAVATED [None]
